FAERS Safety Report 26044567 (Version 1)
Quarter: 2025Q4

REPORT INFORMATION
  Report Type: Spontaneous
  Country: US (occurrence: US)
  Receive Date: 20251114
  Receipt Date: 20251114
  Transmission Date: 20260118
  Serious: Yes (Other)
  Sender: OCTAPHARMA
  Company Number: US-OCTA-2025001035

PATIENT
  Age: 43 Year
  Sex: Male

DRUGS (3)
  1. HUMAN IMMUNOGLOBULIN G [Suspect]
     Active Substance: HUMAN IMMUNOGLOBULIN G
     Indication: Ocular pemphigoid
     Dosage: DIVIDED OVER 3 INFUSIONS PER MONTH
     Route: 042
  2. DOXYCYCLINE [Concomitant]
     Active Substance: DOXYCYCLINE
     Indication: Ocular pemphigoid
  3. MYCOPHENOLATE MOFETIL [Concomitant]
     Active Substance: MYCOPHENOLATE MOFETIL
     Indication: Ocular pemphigoid

REACTIONS (2)
  - Retinal vein occlusion [Unknown]
  - Superficial vein thrombosis [Not Recovered/Not Resolved]
